FAERS Safety Report 5831911-8 (Version None)
Quarter: 2008Q3

REPORT INFORMATION
  Report Type: 
  Country: None (occurrence: None)
  Receive Date: 20080804
  Receipt Date: 20080730
  Transmission Date: 20090109
  Serious: Yes (Life-Threatening, Other)
  Sender: FDA-Public Use
  Company Number: US-JNJFOC-20060303281

PATIENT
  Sex: Male

DRUGS (3)
  1. REOPRO [Suspect]
     Dosage: 0.125 G/KG/MINUTE FOR 10 HOURS
  2. REOPRO [Suspect]
     Indication: ACUTE MYOCARDIAL INFARCTION
     Dosage: BOLUS DOSE
  3. HEPARIN [Concomitant]
     Route: 058

REACTIONS (3)
  - HAEMATOMA [None]
  - HELLP SYNDROME [None]
  - THROMBOCYTOPENIA [None]
